FAERS Safety Report 7864364-9 (Version None)
Quarter: 2011Q4

REPORT INFORMATION
  Report Type: 
  Country: None (occurrence: None)
  Receive Date: 20111028
  Receipt Date: 20111020
  Transmission Date: 20120403
  Serious: Yes (Other)
  Sender: FDA-Public Use
  Company Number: BR-ASTELLAS-2011US000234

PATIENT

DRUGS (12)
  1. TACROLIMUS [Suspect]
     Indication: RENAL TRANSPLANT
     Dosage: 7 MG, UID/QD
     Route: 048
     Dates: start: 20090723, end: 20091103
  2. PREDNISONE [Concomitant]
     Dosage: 7.5 MG, UID/QD
     Route: 048
     Dates: start: 20100319, end: 20110525
  3. TACROLIMUS [Suspect]
     Dosage: 6 MG, UID/QD
     Route: 048
     Dates: start: 20091104, end: 20091110
  4. TACROLIMUS [Suspect]
     Dosage: 1 MG, UID/QD
     Route: 048
     Dates: start: 20110112, end: 20110218
  5. MYCOPHENOLATE SODIUM [Concomitant]
     Dosage: 1080 MG, UID/QD
     Route: 048
     Dates: start: 20100402, end: 20100415
  6. TACROLIMUS [Suspect]
     Dosage: 5 MG, UID/QD
     Route: 048
     Dates: start: 20091111, end: 20091124
  7. TACROLIMUS [Suspect]
     Dosage: 4 MG, UID/QD
     Route: 048
     Dates: start: 20091125, end: 20100311
  8. TACROLIMUS [Suspect]
     Dosage: 2 MG, UID/QD
     Route: 048
     Dates: start: 20100312, end: 20110111
  9. MYCOPHENOLATE SODIUM [Concomitant]
     Dosage: 360 MG, BID
     Route: 048
     Dates: start: 20100416
  10. PREDNISONE [Concomitant]
     Indication: RENAL TRANSPLANT
     Dosage: 10 MG, UID/QD
     Route: 048
     Dates: start: 20100107, end: 20100318
  11. PREDNISONE [Concomitant]
     Dosage: 5 MG, UID/QD
     Route: 048
     Dates: start: 20110526
  12. MYCOPHENOLATE SODIUM [Concomitant]
     Indication: RENAL TRANSPLANT
     Dosage: 720 MG, BID
     Route: 048
     Dates: start: 20090723, end: 20100401

REACTIONS (4)
  - NEPHRITIS [None]
  - INFLAMMATION [None]
  - RENAL TUBULAR ATROPHY [None]
  - KIDNEY FIBROSIS [None]
